FAERS Safety Report 9626898 (Version 1)
Quarter: 2013Q4

REPORT INFORMATION
  Report Type: Spontaneous
  Country: US (occurrence: US)
  Receive Date: 20131016
  Receipt Date: 20131016
  Transmission Date: 20140711
  Serious: Yes (Other)
  Sender: FDA-Public Use
  Company Number: US-PFIZER INC-2013292307

PATIENT
  Age: 39 Year
  Sex: Female

DRUGS (3)
  1. PHENYTOIN [Suspect]
     Indication: CONVULSION
     Dosage: UNK
  2. PHENYTOIN [Suspect]
     Dosage: 300 MG, DAILY
  3. VALIUM [Concomitant]
     Dosage: UNK

REACTIONS (7)
  - Intentional drug misuse [Unknown]
  - Toxicity to various agents [Recovered/Resolved]
  - Choreoathetosis [Recovered/Resolved]
  - Diplopia [Recovered/Resolved]
  - Abnormal behaviour [Recovered/Resolved]
  - Somnolence [Recovered/Resolved]
  - Nystagmus [Recovered/Resolved]
